FAERS Safety Report 6655992-7 (Version None)
Quarter: 2010Q1

REPORT INFORMATION
  Report Type: 
  Country: None (occurrence: None)
  Receive Date: 20100329
  Receipt Date: 20100319
  Transmission Date: 20100710
  Serious: Yes (Other)
  Sender: FDA-Public Use
  Company Number: US-PFIZER INC-2010036764

PATIENT
  Sex: Male

DRUGS (4)
  1. LIPITOR [Suspect]
     Indication: BLOOD CHOLESTEROL INCREASED
     Dosage: UNK
  2. LIPITOR [Suspect]
     Dosage: 20 MG, 1X/DAY
     Route: 048
  3. LIPITOR [Suspect]
     Dosage: 40 MG, 1X/DAY
  4. LIPITOR [Suspect]
     Dosage: 80 MG, 1X/DAY

REACTIONS (4)
  - EAR DISCOMFORT [None]
  - EAR INFECTION [None]
  - HYPERSENSITIVITY [None]
  - HYPERTENSION [None]
